FAERS Safety Report 12551944 (Version 2)
Quarter: 2016Q4

REPORT INFORMATION
  Report Type: Other
  Country: FR (occurrence: FR)
  Receive Date: 20160713
  Receipt Date: 20161114
  Transmission Date: 20170207
  Serious: Yes (Life-Threatening, Hospitalization, Other)
  Sender: FDA-Public Use
  Company Number: FR-APOTEX-2016AP009805

PATIENT
  Age: 31 Year
  Sex: Female

DRUGS (3)
  1. SERESTA [Suspect]
     Active Substance: OXAZEPAM
     Indication: PERINATAL DEPRESSION
     Dosage: UNK
     Route: 048
     Dates: end: 20160517
  2. PAXIL [Suspect]
     Active Substance: PAROXETINE HYDROCHLORIDE
     Indication: PERINATAL DEPRESSION
     Dosage: 30 MG, QD
     Route: 048
  3. PAXIL [Suspect]
     Active Substance: PAROXETINE HYDROCHLORIDE
     Dosage: 10 MG, QD
     Route: 048
     Dates: end: 20160517

REACTIONS (8)
  - Back pain [Recovered/Resolved]
  - Headache [Recovered/Resolved]
  - Nausea [Recovered/Resolved]
  - Coma [Recovered/Resolved]
  - Photophobia [Recovered/Resolved]
  - Vomiting [Recovered/Resolved]
  - Paraesthesia [Recovered/Resolved]
  - Vertigo [Recovered/Resolved]

NARRATIVE: CASE EVENT DATE: 20160517
